FAERS Safety Report 10542342 (Version 1)
Quarter: 2014Q4

REPORT INFORMATION
  Report Type: Spontaneous
  Country: GB (occurrence: GB)
  Receive Date: 20141024
  Receipt Date: 20141024
  Transmission Date: 20150529
  Serious: Yes (Death)
  Sender: FDA-Public Use
  Company Number: PHHY2014GB135291

PATIENT
  Age: 52 Year
  Sex: Male

DRUGS (1)
  1. SERTRALINE HYDROCHLORIDE. [Suspect]
     Active Substance: SERTRALINE HYDROCHLORIDE
     Indication: ANTIDEPRESSANT THERAPY
     Dosage: UNK
     Route: 065

REACTIONS (8)
  - Obstructive airways disorder [Fatal]
  - Mobility decreased [Unknown]
  - Antidepressant drug clearance decreased [Fatal]
  - Hepatic cirrhosis [Fatal]
  - Fall [Unknown]
  - Coronary artery insufficiency [Fatal]
  - Bronchopneumonia [Fatal]
  - Pulmonary arterial hypertension [Fatal]
